FAERS Safety Report 6007027-7 (Version None)
Quarter: 2008Q4

REPORT INFORMATION
  Report Type: 
  Country: None (occurrence: None)
  Receive Date: 20081217
  Receipt Date: 20070114
  Transmission Date: 20090506
  Serious: No
  Sender: FDA-Public Use
  Company Number: US-ASTRAZENECA-2007UW28912

PATIENT
  Age: 48 Year
  Weight: 90.9 kg

DRUGS (3)
  1. CRESTOR [Suspect]
     Indication: LIPIDS INCREASED
     Route: 048
     Dates: start: 20070110, end: 20071205
  2. TRICOR [Concomitant]
     Indication: BLOOD TRIGLYCERIDES INCREASED
     Route: 048
     Dates: start: 20070630
  3. OMACOR [Concomitant]
     Route: 048
     Dates: start: 20070110

REACTIONS (2)
  - BLOOD CREATININE INCREASED [None]
  - NEUROPATHY PERIPHERAL [None]
